FAERS Safety Report 16720251 (Version 1)
Quarter: 2019Q4

REPORT INFORMATION
  Report Type: Spontaneous
  Country: US (occurrence: US)
  Receive Date: 20190819
  Receipt Date: 20190819
  Transmission Date: 20200122
  Serious: Yes (Hospitalization)
  Sender: FDA-Public Use
  Company Number: None

PATIENT
  Age: 71 Year
  Sex: Female
  Weight: 62 kg

DRUGS (1)
  1. SUNITINIB [Suspect]
     Active Substance: SUNITINIB
     Indication: BREAST CANCER
     Route: 048
     Dates: start: 20190618, end: 20190630

REACTIONS (1)
  - Encephalopathy [None]

NARRATIVE: CASE EVENT DATE: 20190630
